FAERS Safety Report 20598229 (Version 1)
Quarter: 2022Q1

REPORT INFORMATION
  Report Type: Spontaneous
  Country: US (occurrence: US)
  Receive Date: 20220315
  Receipt Date: 20220315
  Transmission Date: 20220423
  Serious: Yes (Other)
  Sender: FDA-Public Use
  Company Number: US-INCYTE CORPORATION-2022IN002480

PATIENT

DRUGS (1)
  1. JAKAFI [Suspect]
     Active Substance: RUXOLITINIB
     Indication: Graft versus host disease
     Dosage: 5 MILLIGRAM, 2 TABLETS EVERY MORNING AND 1 TABLET EVERY EVENING
     Route: 048
     Dates: start: 202202

REACTIONS (3)
  - Leukaemia [Unknown]
  - Joint swelling [Unknown]
  - Peripheral swelling [Unknown]
